FAERS Safety Report 25698427 (Version 1)
Quarter: 2025Q3

REPORT INFORMATION
  Report Type: Spontaneous
  Country: CN (occurrence: CN)
  Receive Date: 20250819
  Receipt Date: 20250819
  Transmission Date: 20251021
  Serious: Yes (Other)
  Sender: BAXTER
  Company Number: None

PATIENT
  Age: 47 Year
  Sex: Female
  Weight: 56 kg

DRUGS (4)
  1. CYCLOPHOSPHAMIDE [Suspect]
     Active Substance: CYCLOPHOSPHAMIDE
     Indication: Breast cancer female
     Dosage: 900 MG, QD, (D1) WITH 100 ML SODIUM CHLORIDE
     Route: 041
     Dates: start: 20250807, end: 20250807
  2. SODIUM CHLORIDE [Suspect]
     Active Substance: SODIUM CHLORIDE
     Dosage: 100 ML, QD (D1) (CYCLOPHOSPHAMIDE WITH 0.9% SODIUM CHLORIDE)
     Route: 041
     Dates: start: 20250807, end: 20250807
  3. DEXTROSE [Suspect]
     Active Substance: DEXTROSE MONOHYDRATE
     Dosage: 100 ML, QD (PIRARUBICIN HYDROCHLORIDE WITH 5 % GLUCOSE)
     Route: 041
     Dates: start: 20250807, end: 20250807
  4. PIRARUBICIN HYDROCHLORIDE [Suspect]
     Active Substance: PIRARUBICIN HYDROCHLORIDE
     Indication: Breast cancer female
     Dosage: 70 MG, QD, D1 WITH GLUCOSE 100 ML
     Route: 041
     Dates: start: 20250807, end: 20250807

REACTIONS (3)
  - Dyspepsia [Recovering/Resolving]
  - Gastrooesophageal reflux disease [Recovering/Resolving]
  - Decreased appetite [Unknown]

NARRATIVE: CASE EVENT DATE: 20250808
